FAERS Safety Report 7709499-6 (Version None)
Quarter: 2011Q3

REPORT INFORMATION
  Report Type: 
  Country: None (occurrence: None)
  Receive Date: 20110825
  Receipt Date: 20110825
  Transmission Date: 20111222
  Serious: Yes (Other)
  Sender: FDA-Public Use
  Company Number: DE-ABBOTT-11P-062-0848538-00

PATIENT
  Sex: Female

DRUGS (2)
  1. HUMIRA [Suspect]
     Indication: PRODUCT USED FOR UNKNOWN INDICATION
     Dates: start: 20101120, end: 20110701
  2. HUMIRA [Suspect]
     Dates: start: 20110822

REACTIONS (5)
  - BRONCHITIS [None]
  - CYSTITIS [None]
  - CATARACT [None]
  - PRURITUS [None]
  - EYELID OEDEMA [None]
